FAERS Safety Report 4949369-X (Version None)
Quarter: 2006Q1

REPORT INFORMATION
  Report Type: 
  Country: None (occurrence: None)
  Receive Date: 20060315
  Receipt Date: 20060221
  Transmission Date: 20060701
  Serious: Yes (Hospitalization, Disabling, Other)
  Sender: FDA-Public Use
  Company Number: US200511001262

PATIENT
  Age: 41 Year
  Sex: Female
  Weight: 70.3 kg

DRUGS (14)
  1. ZYPREXA [Suspect]
     Dosage: 20 MG,
     Dates: start: 20000101
  2. CLOZARIL [Concomitant]
  3. SEROQUEL [Concomitant]
  4. RISPERDAL /SWE/ (RISPERIDONE) [Concomitant]
  5. GEODON [Concomitant]
  6. TRILAFON [Concomitant]
  7. NAVANE [Concomitant]
  8. STELAZINE [Concomitant]
  9. TEGRETOL [Concomitant]
  10. DEPAKOTE [Concomitant]
  11. WELLBUTRIN [Concomitant]
  12. SERZONE [Concomitant]
  13. EFFEXOR [Concomitant]
  14. METFORMIN HCL [Concomitant]

REACTIONS (15)
  - BLINDNESS [None]
  - DIABETES MELLITUS INSULIN-DEPENDENT [None]
  - DIABETES MELLITUS NON-INSULIN-DEPENDENT [None]
  - EMOTIONAL DISTRESS [None]
  - GENERAL PHYSICAL HEALTH DETERIORATION [None]
  - HYPERGLYCAEMIA [None]
  - HYPERTENSION [None]
  - INSULIN RESISTANCE [None]
  - KETONURIA [None]
  - METABOLIC DISORDER [None]
  - OBESITY [None]
  - PANCREATITIS [None]
  - STAPHYLOCOCCAL INFECTION [None]
  - VISION BLURRED [None]
  - WEIGHT DECREASED [None]
